FAERS Safety Report 8962860 (Version 1)
Quarter: 2012Q4

REPORT INFORMATION
  Report Type: Report from Study
  Country: FR (occurrence: FR)
  Receive Date: 20121213
  Receipt Date: 20121213
  Transmission Date: 20130627
  Serious: Yes (Death, Hospitalization)
  Sender: FDA-Public Use
  Company Number: FR-ROCHE-1155576

PATIENT
  Age: 85 Year
  Sex: Female

DRUGS (9)
  1. RITUXIMAB [Suspect]
     Indication: CHRONIC LYMPHOCYTIC LEUKAEMIA
     Route: 042
     Dates: start: 20101129, end: 20110302
  2. RITUXIMAB [Suspect]
     Dosage: maintanance dose
     Route: 042
     Dates: start: 20110530, end: 20110609
  3. CYCLOPHOSPHAMIDE [Suspect]
     Indication: CHRONIC LYMPHOCYTIC LEUKAEMIA
     Route: 065
     Dates: start: 20101129, end: 20110302
  4. FLUDARABINE [Suspect]
     Indication: CHRONIC LYMPHOCYTIC LEUKAEMIA
     Route: 065
     Dates: start: 20101129, end: 20110302
  5. AUGMENTIN [Concomitant]
  6. RULID [Concomitant]
  7. CALCIPARINE [Concomitant]
  8. COTRIMOXAZOLE [Concomitant]
  9. VALACICLOVIR [Concomitant]

REACTIONS (3)
  - Septic shock [Fatal]
  - Thrombocytopenia [Not Recovered/Not Resolved]
  - Hypogammaglobulinaemia [Not Recovered/Not Resolved]
